FAERS Safety Report 8906050 (Version 1)
Quarter: 2012Q4

REPORT INFORMATION
  Report Type: 
  Country: DK (occurrence: DE)
  Receive Date: 20121109
  Receipt Date: 20121109
  Transmission Date: 20130627
  Serious: Yes (Other)
  Sender: FDA-Public Use
  Company Number: DE-FRI-1000040289

PATIENT
  Age: 32 Year
  Sex: Female

DRUGS (2)
  1. CITALOPRAM [Suspect]
     Indication: DEPRESSION
     Dosage: 60 mg
     Route: 048
     Dates: start: 20110318, end: 20111219
  2. VIGIL [Suspect]
     Indication: NARCOLEPSY
     Dosage: 400 mg
     Route: 048
     Dates: start: 20110318, end: 20111219

REACTIONS (3)
  - Pregnancy [Recovered/Resolved]
  - Premature labour [Recovered/Resolved]
  - Prescribed overdose [Recovered/Resolved]
